FAERS Safety Report 5276047-2 (Version None)
Quarter: 2007Q1

REPORT INFORMATION
  Report Type: 
  Country: None (occurrence: None)
  Receive Date: 20061213
  Receipt Date: 20051114
  Transmission Date: 20070707
  Serious: No
  Sender: FDA-Public Use
  Company Number: 2005UW13423

PATIENT
  Age: 77 Year
  Sex: Female
  Weight: 90.718 kg

DRUGS (18)
  1. SEROQUEL [Suspect]
     Dosage: TAPERING UP DOSE Q 2 WEEKS
     Dates: start: 20050605
  2. SEROQUEL [Suspect]
     Dosage: 25 MG IN AM AND 25 MG AT HS
     Dates: start: 20050607, end: 20050619
  3. SEROQUEL [Suspect]
     Dosage: 50 MG IN AM AND 50 MG AT HS
     Dates: start: 20050620, end: 20050703
  4. SEROQUEL [Suspect]
     Dosage: 75 MG IN AM AND 100 MG AT HS
     Dates: start: 20050714, end: 20050717
  5. SEROQUEL [Suspect]
     Indication: SCREAMING
     Dosage: MG IN AM AND 200 MG AT HS
     Dates: start: 20050718
  6. SEROQUEL [Suspect]
     Indication: SCREAMING
     Dosage: TAPERING DOWN DOSE TO DISCONTINUE
     Dates: start: 20050911
  7. RISPERDAL [Suspect]
     Indication: SCHIZOAFFECTIVE DISORDER
     Dosage: 2 MG AM AND 4 MG HS
  8. RISPERDAL [Suspect]
     Indication: SCHIZOAFFECTIVE DISORDER
     Dosage: 1 MG AM AND 2 MG HS
     Dates: start: 20050429, end: 20050606
  9. RISPERDAL [Suspect]
     Indication: SCHIZOAFFECTIVE DISORDER
     Dosage: 0.5 MG IN AM AND 1.5 MG AT HS
     Dates: start: 20050607, end: 20050619
  10. RISPERDAL [Suspect]
     Indication: SCHIZOAFFECTIVE DISORDER
     Dosage: 1.0 MG AT HS
     Dates: start: 20050620, end: 20050703
  11. RISPERDAL [Suspect]
     Indication: SCHIZOAFFECTIVE DISORDER
     Dosage: 0.5 MG HS
     Dates: start: 20050714, end: 20050717
  12. RISPERDAL [Suspect]
     Indication: SCHIZOAFFECTIVE DISORDER
     Dosage: TAPERING UP TO 2 MG AM AND 4 MG HS
     Dates: start: 20050911
  13. DEPAKOTE [Concomitant]
  14. REMERON [Concomitant]
  15. STARLIX [Concomitant]
  16. ACTOS [Concomitant]
  17. KLONOPIN [Concomitant]
  18. NEURONTIN [Concomitant]

REACTIONS (5)
  - ABDOMINAL PAIN UPPER [None]
  - HEADACHE [None]
  - MEMORY IMPAIRMENT [None]
  - TARDIVE DYSKINESIA [None]
  - TREMOR [None]
